FAERS Safety Report 20679893 (Version 1)
Quarter: 2022Q2

REPORT INFORMATION
  Report Type: Spontaneous
  Country: CN (occurrence: CN)
  Receive Date: 20220406
  Receipt Date: 20220406
  Transmission Date: 20220721
  Serious: Yes (Hospitalization, Disabling)
  Sender: FDA-Public Use
  Company Number: CN-PFIZER INC-202200483340

PATIENT
  Age: 52 Year
  Sex: Female
  Weight: 56 kg

DRUGS (1)
  1. CELECOXIB [Suspect]
     Active Substance: CELECOXIB
     Indication: Analgesic therapy
     Dosage: 0.2 G, 2X/DAY
     Route: 048
     Dates: start: 20220309, end: 20220316

REACTIONS (1)
  - Liver injury [Recovering/Resolving]

NARRATIVE: CASE EVENT DATE: 20220316
